FAERS Safety Report 25939462 (Version 3)
Quarter: 2025Q4

REPORT INFORMATION
  Report Type: Spontaneous
  Country: CA (occurrence: CA)
  Receive Date: 20251020
  Receipt Date: 20251214
  Transmission Date: 20260117
  Serious: Yes (Other)
  Sender: ALEXION PHARMACEUTICALS
  Company Number: CA-AstraZeneca-CH-00972292A

PATIENT
  Age: 65 Year
  Sex: Female
  Weight: 56.689 kg

DRUGS (4)
  1. TAGRISSO [Suspect]
     Active Substance: OSIMERTINIB
     Dosage: 80 MILLIGRAM
     Route: 061
  2. DEXAMETHASONE [Concomitant]
     Active Substance: DEXAMETHASONE
  3. PANTOPRAZOLE SODIUM [Concomitant]
     Active Substance: PANTOPRAZOLE SODIUM
  4. TRAZODONE [Concomitant]
     Active Substance: TRAZODONE HYDROCHLORIDE

REACTIONS (12)
  - Metastases to spinal cord [Unknown]
  - Disease recurrence [Not Recovered/Not Resolved]
  - Confusional state [Unknown]
  - Amnesia [Unknown]
  - Asthenia [Unknown]
  - Headache [Unknown]
  - Mood swings [Unknown]
  - Speech disorder [Unknown]
  - Aphasia [Unknown]
  - Sleep disorder [Unknown]
  - Insomnia [Unknown]
  - Dementia [Unknown]
